FAERS Safety Report 10987948 (Version 2)
Quarter: 2015Q2

REPORT INFORMATION
  Report Type: Spontaneous
  Country: US (occurrence: US)
  Receive Date: 20150404
  Receipt Date: 20150525
  Transmission Date: 20150821
  Serious: No
  Sender: FDA-Public Use
  Company Number: US-JNJFOC-20120516237

PATIENT
  Age: 19 Year
  Sex: Male
  Weight: 74.84 kg

DRUGS (6)
  1. REMICADE [Suspect]
     Active Substance: INFLIXIMAB
     Indication: CROHN^S DISEASE
     Route: 042
     Dates: start: 20130811
  2. NSAIDS [Concomitant]
     Active Substance: UNSPECIFIED INGREDIENT
     Route: 065
  3. PROBIOTICS [Concomitant]
     Active Substance: PROBIOTICS NOS
     Route: 065
  4. REMICADE [Suspect]
     Active Substance: INFLIXIMAB
     Indication: CROHN^S DISEASE
     Route: 042
     Dates: start: 20120413
  5. REMICADE [Suspect]
     Active Substance: INFLIXIMAB
     Indication: CROHN^S DISEASE
     Route: 042
     Dates: start: 201004
  6. VITAMIN D W/ CALCIUM [Concomitant]
     Route: 065

REACTIONS (7)
  - Infusion related reaction [Recovered/Resolved]
  - Infusion site bruising [Recovered/Resolved]
  - Infusion site extravasation [Recovered/Resolved]
  - Infusion site pain [Recovered/Resolved]
  - Arthralgia [Recovered/Resolved]
  - Weight gain poor [Not Recovered/Not Resolved]
  - Infusion site erythema [Recovered/Resolved]

NARRATIVE: CASE EVENT DATE: 20120413
